FAERS Safety Report 12854352 (Version 1)
Quarter: 2016Q4

REPORT INFORMATION
  Report Type: Spontaneous
  Country: US (occurrence: US)
  Receive Date: 20161017
  Receipt Date: 20161017
  Transmission Date: 20170207
  Serious: Yes (Other)
  Sender: FDA-Public Use
  Company Number: US-BAYER-2016-193822

PATIENT
  Age: 27 Year
  Sex: Male
  Weight: 136.5 kg

DRUGS (1)
  1. ALEVE [Suspect]
     Active Substance: NAPROXEN SODIUM
     Dosage: 2 DF, UNK
     Route: 048
     Dates: end: 20161005

REACTIONS (4)
  - Drug hypersensitivity [Not Recovered/Not Resolved]
  - Gastrointestinal ulcer [Not Recovered/Not Resolved]
  - Faeces discoloured [Not Recovered/Not Resolved]
  - Epigastric discomfort [Not Recovered/Not Resolved]

NARRATIVE: CASE EVENT DATE: 201609
